FAERS Safety Report 4728231-1 (Version None)
Quarter: 2005Q3

REPORT INFORMATION
  Report Type: 
  Country: None (occurrence: None)
  Receive Date: 20050729
  Receipt Date: 20050609
  Transmission Date: 20060218
  Serious: No
  Sender: FDA-Public Use
  Company Number: US-BRISTOL-MYERS SQUIBB COMPANY-12999223

PATIENT
  Sex: Male

DRUGS (4)
  1. BENOXANE [Suspect]
     Indication: TESTIS CANCER
     Route: 042
     Dates: start: 20050523, end: 20050523
  2. ACETAMINOPHEN [Concomitant]
     Indication: PREMEDICATION
  3. ACETAMINOPHEN [Concomitant]
  4. ANZEMET [Concomitant]

REACTIONS (3)
  - ACCIDENTAL OVERDOSE [None]
  - MEDICATION ERROR [None]
  - NO ADVERSE EFFECT [None]
